FAERS Safety Report 25931383 (Version 2)
Quarter: 2025Q4

REPORT INFORMATION
  Report Type: Spontaneous
  Country: RS (occurrence: RS)
  Receive Date: 20251016
  Receipt Date: 20251021
  Transmission Date: 20260118
  Serious: Yes (Other)
  Sender: NOVARTIS
  Company Number: RS-002147023-NVSC2025RS158648

PATIENT

DRUGS (1)
  1. CANAKINUMAB [Suspect]
     Active Substance: CANAKINUMAB
     Indication: Hyper IgD syndrome
     Dosage: UNK
     Route: 065
     Dates: start: 202405

REACTIONS (1)
  - Autoimmune disorder [Unknown]
